FAERS Safety Report 5400550-5 (Version None)
Quarter: 2007Q3

REPORT INFORMATION
  Report Type: 
  Country: None (occurrence: None)
  Receive Date: 20070725
  Receipt Date: 20070719
  Transmission Date: 20080115
  Serious: Yes (Death)
  Sender: FDA-Public Use
  Company Number: 2007S1000143

PATIENT
  Age: 10 Day
  Sex: Male
  Weight: 0.72 kg

DRUGS (10)
  1. NITRIC OXIDE [Suspect]
     Indication: LUNG DISORDER
     Dosage: 5 PPM;CONT;INH
     Route: 055
     Dates: start: 20070622, end: 20070702
  2. INOMAX [Suspect]
     Dosage: CONT
     Dates: start: 20070701
  3. CEFOTAXIME SODIUM [Concomitant]
  4. VANCOMYCIN [Concomitant]
  5. GENTAMICIN [Concomitant]
  6. FENTANYL [Concomitant]
  7. FUROSEMIDE [Concomitant]
  8. DOPAMINE HCL [Concomitant]
  9. DOBUTAMINE HCL [Concomitant]
  10. ADRENALINE [Concomitant]

REACTIONS (5)
  - DEATH NEONATAL [None]
  - HYPOXIA [None]
  - METABOLIC ACIDOSIS [None]
  - MULTI-ORGAN FAILURE [None]
  - NEONATAL DISORDER [None]
